FAERS Safety Report 21516374 (Version 2)
Quarter: 2022Q4

REPORT INFORMATION
  Report Type: Spontaneous
  Country: US (occurrence: US)
  Receive Date: 20221027
  Receipt Date: 20221111
  Transmission Date: 20230113
  Serious: Yes (Hospitalization, Other)
  Sender: FDA-Public Use
  Company Number: US-UNITED THERAPEUTICS-UNT-2022-025275

PATIENT
  Age: 66 Year
  Sex: Female
  Weight: 52.154 kg

DRUGS (4)
  1. REMODULIN [Suspect]
     Active Substance: TREPROSTINIL
     Indication: Pulmonary arterial hypertension
     Dosage: UNK, CONTINUING
     Route: 041
     Dates: start: 20111123
  2. REMODULIN [Suspect]
     Active Substance: TREPROSTINIL
     Dosage: 0.142 ?G/KG, CONTINUING
     Route: 041
  3. REMODULIN [Suspect]
     Active Substance: TREPROSTINIL
     Dosage: 0.145 ?G/KG, CONTINUING
     Route: 041
  4. WARFARIN SODIUM [Concomitant]
     Active Substance: WARFARIN SODIUM
     Indication: Product used for unknown indication
     Dosage: UNK
     Route: 065

REACTIONS (2)
  - Respiratory syncytial virus infection [Unknown]
  - Pneumonia viral [Unknown]

NARRATIVE: CASE EVENT DATE: 20221016
